FAERS Safety Report 18617445 (Version 1)
Quarter: 2020Q4

REPORT INFORMATION
  Report Type: Spontaneous
  Country: US (occurrence: US)
  Receive Date: 20201214
  Receipt Date: 20201214
  Transmission Date: 20210114
  Serious: No
  Sender: FDA-Public Use
  Company Number: None

PATIENT
  Age: 47 Year
  Sex: Male
  Weight: 89.37 kg

DRUGS (2)
  1. BOSULIF 500 MG TABLET [Concomitant]
  2. TASIGNA [Suspect]
     Active Substance: NILOTINIB
     Indication: CHRONIC MYELOID LEUKAEMIA
     Route: 048
     Dates: start: 20201120, end: 20201214

REACTIONS (1)
  - Disease progression [None]

NARRATIVE: CASE EVENT DATE: 20201214
